FAERS Safety Report 7379746-1 (Version None)
Quarter: 2011Q1

REPORT INFORMATION
  Report Type: 
  Country: None (occurrence: None)
  Receive Date: 20110329
  Receipt Date: 20110320
  Transmission Date: 20110831
  Serious: Yes (Other)
  Sender: FDA-Public Use
  Company Number: US-RB-023618-11

PATIENT
  Age: 79 Year
  Sex: Male

DRUGS (1)
  1. MUCINEX [Suspect]
     Route: 048

REACTIONS (3)
  - OVERDOSE [None]
  - BLOOD URINE PRESENT [None]
  - EXPIRED DRUG ADMINISTERED [None]
